FAERS Safety Report 10365189 (Version 1)
Quarter: 2014Q3

REPORT INFORMATION
  Report Type: Spontaneous
  Country: US (occurrence: None)
  Receive Date: 20140804
  Receipt Date: 20140804
  Transmission Date: 20150326
  Serious: Yes (Other)
  Sender: FDA-Public Use
  Company Number: AUR-APL-2014-08002

PATIENT
  Age: 49 Year
  Sex: Female
  Weight: 118.8 kg

DRUGS (6)
  1. PREDNISONE/00044702/ ( PREDNISONE ACETATE) UNKNOWN [Concomitant]
  2. FOLIC ACID ( FOLIC ACID) [Concomitant]
  3. ENBREL [Suspect]
     Active Substance: ETANERCEPT
     Indication: RHEUMATOID ARTHRITIS
     Dosage: 50 MG, ONCE A WEEK, SUBCUTANEOUS
     Route: 058
     Dates: end: 20140701
  4. ZYRTEC ( CETIRIZINE HYDROCHLORIDE) UNKNOWN [Concomitant]
  5. LISINOPRIL (LISINOPRIL) UNKNOWN, UNKNOWN [Suspect]
     Active Substance: LISINOPRIL
     Indication: PRODUCT USED FOR UNKNOWN INDICATION
  6. NASONEX ( MOMETASONE FUROATE) [Concomitant]

REACTIONS (5)
  - Activities of daily living impaired [None]
  - Cough [None]
  - Pain [None]
  - Urine analysis abnormal [None]
  - Rheumatoid arthritis [None]

NARRATIVE: CASE EVENT DATE: 201403
